FAERS Safety Report 25015065 (Version 4)
Quarter: 2025Q4

REPORT INFORMATION
  Report Type: Spontaneous
  Country: CA (occurrence: CA)
  Receive Date: 20250226
  Receipt Date: 20251219
  Transmission Date: 20260118
  Serious: Yes (Death, Life-Threatening, Hospitalization, Disabling, Other)
  Sender: TEVA
  Company Number: CA-TEVA-VS-3303269

PATIENT
  Age: 44 Year
  Sex: Female
  Weight: 60 kg

DRUGS (52)
  1. ISOPROPYL ALCOHOL [Suspect]
     Active Substance: ISOPROPYL ALCOHOL
     Indication: Product used for unknown indication
     Dosage: DOSE FORM :LIQUID TOPICAL
     Route: 061
  2. PANTOPRAZOLE SODIUM [Concomitant]
     Active Substance: PANTOPRAZOLE SODIUM
     Indication: Product used for unknown indication
     Route: 065
  3. SULFAMETHOXAZOLE\TRIMETHOPRIM [Concomitant]
     Active Substance: SULFAMETHOXAZOLE\TRIMETHOPRIM
     Indication: Product used for unknown indication
     Dosage: DOSE FORM : NOT SPECIFIED
     Route: 065
  4. RAMIPRIL [Suspect]
     Active Substance: RAMIPRIL
     Indication: Product used for unknown indication
     Route: 065
  5. PERCOCET [Suspect]
     Active Substance: ACETAMINOPHEN\OXYCODONE HYDROCHLORIDE
     Indication: Rheumatoid arthritis
     Dosage: ROUTE OF ADMINISTRATION : INTRAVENOUS DRIP
     Route: 065
  6. MYCOPHENOLATE MOFETIL [Suspect]
     Active Substance: MYCOPHENOLATE MOFETIL
     Indication: Product used for unknown indication
     Route: 065
  7. OXYCODONE TEREPHTHALATE [Suspect]
     Active Substance: OXYCODONE TEREPHTHALATE
     Indication: Product used for unknown indication
     Dosage: DOSE FORM ; NOT SPECIFIED
     Route: 065
  8. CHLORHEXIDINE GLUCONATE [Suspect]
     Active Substance: CHLORHEXIDINE GLUCONATE
     Indication: Product used for unknown indication
     Route: 065
  9. ATIVAN [Suspect]
     Active Substance: LORAZEPAM
     Indication: Product used for unknown indication
     Route: 065
  10. RITUXIMAB [Suspect]
     Active Substance: RITUXIMAB
     Indication: Rheumatoid arthritis
     Dosage: ROUTE OF ADMINISTRATION : INTRAVENOUS DRIP
     Route: 065
  11. PREGABALIN [Suspect]
     Active Substance: PREGABALIN
     Indication: Product used for unknown indication
     Route: 065
  12. CORTISONE ACETATE [Suspect]
     Active Substance: CORTISONE ACETATE
     Indication: Rheumatoid arthritis
     Route: 061
  13. CORTISONE ACETATE [Suspect]
     Active Substance: CORTISONE ACETATE
     Indication: Rheumatoid arthritis
     Route: 061
  14. CAFFEINE [Suspect]
     Active Substance: CAFFEINE
     Indication: Product used for unknown indication
     Route: 065
  15. PLAQUENIL [Suspect]
     Active Substance: HYDROXYCHLOROQUINE SULFATE
     Indication: Product used for unknown indication
     Route: 065
  16. PLAQUENIL [Suspect]
     Active Substance: HYDROXYCHLOROQUINE SULFATE
     Indication: Product used for unknown indication
     Route: 048
  17. CELECOXIB [Suspect]
     Active Substance: CELECOXIB
     Indication: Product used for unknown indication
     Route: 065
  18. TOFACITINIB [Suspect]
     Active Substance: TOFACITINIB
     Indication: Product used for unknown indication
     Route: 065
  19. TOFACITINIB [Suspect]
     Active Substance: TOFACITINIB
     Indication: Product used for unknown indication
     Route: 065
  20. MAGNESIUM [Suspect]
     Active Substance: MAGNESIUM
     Indication: Product used for unknown indication
     Route: 065
  21. HYDROCORTISONE ACETATE [Suspect]
     Active Substance: HYDROCORTISONE ACETATE
     Indication: Rheumatoid arthritis
     Route: 065
  22. IBUPROFEN [Suspect]
     Active Substance: IBUPROFEN
     Indication: Product used for unknown indication
     Route: 065
  23. METHOTREXATE [Suspect]
     Active Substance: METHOTREXATE
     Indication: Product used for unknown indication
     Route: 048
  24. METHOTREXATE [Suspect]
     Active Substance: METHOTREXATE
     Indication: Product used for unknown indication
     Route: 058
  25. METHOTREXATE [Suspect]
     Active Substance: METHOTREXATE
     Indication: Product used for unknown indication
     Route: 048
  26. METHOTREXATE [Suspect]
     Active Substance: METHOTREXATE
     Indication: Product used for unknown indication
     Route: 048
  27. METHOTREXATE [Suspect]
     Active Substance: METHOTREXATE
     Indication: Product used for unknown indication
     Route: 048
  28. METHOTREXATE [Suspect]
     Active Substance: METHOTREXATE
     Indication: Product used for unknown indication
     Route: 048
  29. METHOTREXATE [Suspect]
     Active Substance: METHOTREXATE
     Indication: Product used for unknown indication
     Route: 065
  30. METHOTREXATE [Suspect]
     Active Substance: METHOTREXATE
     Indication: Product used for unknown indication
     Route: 065
  31. METHOTREXATE [Suspect]
     Active Substance: METHOTREXATE
     Indication: Product used for unknown indication
     Route: 048
  32. LANSOPRAZOLE [Suspect]
     Active Substance: LANSOPRAZOLE
     Indication: Product used for unknown indication
     Dosage: DOSAGE FORM:CAPSULE, DELAYED RELEASE
     Route: 065
  33. ALFACALCIDOL [Suspect]
     Active Substance: ALFACALCIDOL
     Indication: Product used for unknown indication
     Dosage: DOSE FORM : NOT SPECIFIED
     Route: 065
  34. LORAZEPAM [Suspect]
     Active Substance: LORAZEPAM
     Indication: Product used for unknown indication
     Route: 065
  35. TRIAMCINOLONE ACETONIDE [Suspect]
     Active Substance: TRIAMCINOLONE ACETONIDE
     Indication: Rheumatoid arthritis
     Route: 003
  36. LISINOPRIL [Suspect]
     Active Substance: LISINOPRIL
     Indication: Product used for unknown indication
     Route: 065
  37. LISINOPRIL [Suspect]
     Active Substance: LISINOPRIL
     Indication: Product used for unknown indication
     Route: 065
  38. PANTOPRAZOLE [Suspect]
     Active Substance: PANTOPRAZOLE
     Indication: Product used for unknown indication
     Dosage: PANTOPRAZOLE SODIUM
     Route: 065
  39. HYDROXYCHLOROQUINE [Suspect]
     Active Substance: HYDROXYCHLOROQUINE
     Indication: Rheumatoid arthritis
     Route: 048
  40. HYDROXYCHLOROQUINE [Suspect]
     Active Substance: HYDROXYCHLOROQUINE
     Indication: Rheumatoid arthritis
     Route: 048
  41. HYDROXYCHLOROQUINE [Suspect]
     Active Substance: HYDROXYCHLOROQUINE
     Indication: Rheumatoid arthritis
     Route: 065
  42. HYDROXYCHLOROQUINE [Suspect]
     Active Substance: HYDROXYCHLOROQUINE
     Indication: Rheumatoid arthritis
     Route: 048
  43. ALBUTEROL [Suspect]
     Active Substance: ALBUTEROL
     Indication: Product used for unknown indication
     Route: 065
  44. TYLENOL [Concomitant]
     Active Substance: ACETAMINOPHEN
     Indication: Product used for unknown indication
     Dosage: DOSE FORM :NOT SPECIFIED
     Route: 065
  45. QUETIAPINE [Suspect]
     Active Substance: QUETIAPINE
     Indication: Product used for unknown indication
     Dosage: QUETIAPINE FUMARATE
     Route: 065
  46. INFLIXIMAB [Suspect]
     Active Substance: INFLIXIMAB
     Indication: Rheumatoid arthritis
     Dosage: DOSE FORM ;NOT SPECIFIED
     Route: 065
  47. DIPHENHYDRAMINE [Suspect]
     Active Substance: DIPHENHYDRAMINE
     Indication: Product used for unknown indication
     Route: 065
  48. DICLOFENAC [Suspect]
     Active Substance: DICLOFENAC
     Indication: Rheumatoid arthritis
     Dosage: DICLOFENAC POTASSIUM
     Route: 048
  49. AZATHIOPRINE [Suspect]
     Active Substance: AZATHIOPRINE
     Indication: Product used for unknown indication
     Dosage: AZATHIOPRINE SODIUM
     Route: 065
  50. ACETAMINOPHEN [Concomitant]
     Active Substance: ACETAMINOPHEN
     Indication: Product used for unknown indication
     Route: 065
  51. MESALAMINE [Suspect]
     Active Substance: MESALAMINE
     Indication: Product used for unknown indication
     Route: 065
  52. CALCIUM GLUCONATE [Suspect]
     Active Substance: CALCIUM GLUCONATE
     Indication: Product used for unknown indication
     Route: 065

REACTIONS (105)
  - Duodenal ulcer perforation [Fatal]
  - Asthenia [Fatal]
  - Product use issue [Fatal]
  - Joint stiffness [Fatal]
  - Vomiting [Fatal]
  - Laryngitis [Fatal]
  - Muscle spasticity [Fatal]
  - Weight increased [Fatal]
  - Intentional product use issue [Fatal]
  - Joint dislocation [Fatal]
  - Therapeutic product effect decreased [Fatal]
  - Muscle spasms [Fatal]
  - Treatment failure [Fatal]
  - Ear pain [Fatal]
  - Musculoskeletal pain [Fatal]
  - Stomatitis [Fatal]
  - Drug intolerance [Fatal]
  - Dyspnoea [Fatal]
  - Contraindicated product administered [Fatal]
  - Pyrexia [Fatal]
  - Drug ineffective [Fatal]
  - Osteoarthritis [Fatal]
  - Medication error [Fatal]
  - Gastrointestinal disorder [Fatal]
  - Back pain [Fatal]
  - Muscular weakness [Fatal]
  - Maternal exposure timing unspecified [Fatal]
  - Aspartate aminotransferase abnormal [Fatal]
  - Off label use [Fatal]
  - Muscle injury [Fatal]
  - Body temperature increased [Fatal]
  - Dislocation of vertebra [Fatal]
  - Urticaria [Fatal]
  - Anti-cyclic citrullinated peptide antibody positive [Fatal]
  - Diarrhoea [Fatal]
  - Delirium [Fatal]
  - Red blood cell sedimentation rate increased [Fatal]
  - Impaired healing [Fatal]
  - Night sweats [Fatal]
  - Pancreatitis [Fatal]
  - Rheumatic fever [Fatal]
  - Protein total increased [Fatal]
  - White blood cell count increased [Fatal]
  - Discomfort [Fatal]
  - Foot deformity [Fatal]
  - Retinitis [Fatal]
  - Paraesthesia [Fatal]
  - Blister [Fatal]
  - Anxiety [Fatal]
  - Arthralgia [Fatal]
  - Depression [Fatal]
  - Nasopharyngitis [Fatal]
  - Oedema peripheral [Fatal]
  - Depressed mood [Fatal]
  - Lip dry [Fatal]
  - Peripheral swelling [Fatal]
  - Rectal haemorrhage [Fatal]
  - Adjustment disorder with depressed mood [Fatal]
  - Antiphospholipid antibodies [Fatal]
  - Pruritus [Fatal]
  - Autoimmune disorder [Fatal]
  - Chest pain [Fatal]
  - Mobility decreased [Fatal]
  - Drug tolerance decreased [Fatal]
  - Rheumatoid arthritis [Fatal]
  - Ear infection [Fatal]
  - Visual impairment [Fatal]
  - Colitis ulcerative [Fatal]
  - Arthropathy [Fatal]
  - Respiratory disorder [Fatal]
  - Blood cholesterol increased [Fatal]
  - Insomnia [Fatal]
  - Wound infection [Fatal]
  - Contusion [Fatal]
  - Alopecia [Fatal]
  - Liver disorder [Fatal]
  - Amnesia [Fatal]
  - Folliculitis [Fatal]
  - Hepatic cirrhosis [Fatal]
  - Decreased appetite [Fatal]
  - Hepatic enzyme increased [Fatal]
  - Lower respiratory tract infection [Fatal]
  - Malaise [Fatal]
  - Grip strength decreased [Fatal]
  - Porphyria acute [Fatal]
  - Deep vein thrombosis postoperative [Fatal]
  - Feeling hot [Fatal]
  - Functional gastrointestinal disorder [Fatal]
  - Hypoaesthesia [Fatal]
  - Hypertension [Fatal]
  - Abdominal discomfort [Fatal]
  - Bone erosion [Fatal]
  - General physical health deterioration [Fatal]
  - Arthritis [Fatal]
  - Osteoporosis [Fatal]
  - Exostosis [Fatal]
  - Weight decreased [Fatal]
  - Joint swelling [Fatal]
  - Memory impairment [Fatal]
  - Sleep disorder [Fatal]
  - Musculoskeletal stiffness [Fatal]
  - Headache [Fatal]
  - Lung disorder [Fatal]
  - Abdominal pain upper [Fatal]
  - Hand deformity [Fatal]
